FAERS Safety Report 17391147 (Version 1)
Quarter: 2020Q1

REPORT INFORMATION
  Report Type: Other
  Country: US (occurrence: US)
  Receive Date: 20200207
  Receipt Date: 20200207
  Transmission Date: 20200409
  Serious: Yes (Hospitalization)
  Sender: FDA-Public Use
  Company Number: US-VERASTEM-2020-00018

PATIENT

DRUGS (2)
  1. COPIKTRA [Suspect]
     Active Substance: DUVELISIB
     Indication: B-CELL LYMPHOMA
     Dosage: 15 MG, QD
     Route: 048
     Dates: start: 20190731, end: 20200127
  2. COPIKTRA [Suspect]
     Active Substance: DUVELISIB
     Dosage: 25 MG, QD
     Route: 048
     Dates: start: 20190731, end: 20200127

REACTIONS (2)
  - Hospitalisation [Unknown]
  - Prescribed underdose [Recovered/Resolved]

NARRATIVE: CASE EVENT DATE: 20190731
